FAERS Safety Report 19511109 (Version 2)
Quarter: 2021Q3

REPORT INFORMATION
  Report Type: Other
  Country: AU (occurrence: AU)
  Receive Date: 20210709
  Receipt Date: 20210908
  Transmission Date: 20211014
  Serious: Yes (Other)
  Sender: FDA-Public Use
  Company Number: AU-TOLMAR, INC.-21AU028166

PATIENT
  Sex: Male

DRUGS (1)
  1. ELIGARD [Suspect]
     Active Substance: LEUPROLIDE ACETATE
     Indication: PROSTATE CANCER
     Dosage: 22.5 MILLIGRAM, Q 3 MONTH
     Route: 058
     Dates: start: 20210316

REACTIONS (6)
  - Depression [Unknown]
  - Neuropathic arthropathy [Unknown]
  - Blood testosterone increased [Unknown]
  - Bursitis [Unknown]
  - Prostatic specific antigen increased [Unknown]
  - Drug ineffective [Unknown]
